FAERS Safety Report 12601629 (Version 1)
Quarter: 2016Q3

REPORT INFORMATION
  Report Type: Spontaneous
  Country: NL (occurrence: NL)
  Receive Date: 20160728
  Receipt Date: 20160728
  Transmission Date: 20161109
  Serious: Yes (Other)
  Sender: FDA-Public Use
  Company Number: NL-TEVA-680432ACC

PATIENT
  Age: 57 Year
  Sex: Female
  Weight: 96 kg

DRUGS (3)
  1. IBUPROFEN TABLET 600MG [Suspect]
     Active Substance: IBUPROFEN
     Indication: PRODUCT USED FOR UNKNOWN INDICATION
     Dosage: ONCE DAILY ONE PIECE
     Route: 048
     Dates: start: 2015
  2. ENALAPRIL TABLET 40MG [Interacting]
     Active Substance: ENALAPRIL
     Indication: HYPERTENSION
     Route: 048
     Dates: start: 20160706
  3. MONTELUKAST TABLET OMHULD 10MG [Interacting]
     Active Substance: MONTELUKAST SODIUM
     Indication: CHRONIC OBSTRUCTIVE PULMONARY DISEASE
     Dosage: 3 TIMES PER WEEK ONE PIECE
     Route: 048
     Dates: start: 20160703

REACTIONS (2)
  - Rectal haemorrhage [Recovering/Resolving]
  - Drug interaction [Recovering/Resolving]

NARRATIVE: CASE EVENT DATE: 20160707
